FAERS Safety Report 16595292 (Version 1)
Quarter: 2019Q3

REPORT INFORMATION
  Report Type: Spontaneous
  Country: FR (occurrence: FR)
  Receive Date: 20190718
  Receipt Date: 20190718
  Transmission Date: 20191004
  Serious: Yes (Hospitalization, Other)
  Sender: FDA-Public Use
  Company Number: FR-AUROBINDO-AUR-APL-2019-039924

PATIENT

DRUGS (20)
  1. IPRATROPIUM ARROW [Suspect]
     Active Substance: IPRATROPIUM
     Indication: RESPIRATORY FAILURE
     Dosage: 3 DOSAGE FORM, DAILY,1-1-1
     Route: 055
     Dates: start: 20190430
  2. LEVETIRACETAM MYLAN [Suspect]
     Active Substance: LEVETIRACETAM
     Indication: EPILEPSY
     Dosage: 1000 MILLIGRAM, DAILY,1-0-1
     Route: 048
     Dates: start: 20190606
  3. VANCOMYCINE SANDOZ [Suspect]
     Active Substance: VANCOMYCIN
     Indication: STAPHYLOCOCCAL BACTERAEMIA
     Dosage: 2000 MILLIGRAM, DAILY,1-0-1
     Route: 042
     Dates: start: 20190605
  4. MIDAZOLAM [Suspect]
     Active Substance: MIDAZOLAM HYDROCHLORIDE
     Indication: STATUS EPILEPTICUS
     Dosage: 0.1 MILLIGRAM, EVERY HOUR
     Route: 058
     Dates: start: 20190604
  5. XATRAL [Suspect]
     Active Substance: ALFUZOSIN
     Indication: BLADDER CATHETERISATION
     Dosage: 10 MILLIGRAM, DAILY,0-0-1
     Route: 048
     Dates: start: 20190429
  6. PANTOPRAZOLE MYLAN [Concomitant]
     Active Substance: PANTOPRAZOLE SODIUM
     Indication: PROPHYLAXIS AGAINST GASTROINTESTINAL ULCER
     Dosage: 1 DOSAGE FORM, DAILY,0-0-1
     Route: 048
     Dates: end: 20190528
  7. KARDEGIC [Concomitant]
     Active Substance: ASPIRIN DL-LYSINE
     Indication: CARDIOVASCULAR EVENT PROPHYLAXIS
     Dosage: 1 DOSAGE FORM, DAILY,0-0-1
     Route: 048
     Dates: end: 20190603
  8. MOVICOL [Concomitant]
     Active Substance: POLYETHYLENE GLYCOL 3350\POTASSIUM CHLORIDE\SODIUM BICARBONATE\SODIUM CHLORIDE
     Indication: CONSTIPATION
     Dosage: 2 DOSAGE FORM, DAILY,0-2-0
     Route: 048
     Dates: end: 20190618
  9. FUMAFER [Suspect]
     Active Substance: FERROUS FUMARATE
     Indication: ANAEMIA
     Dosage: 198 MILLIGRAM, DAILY,1-1-1
     Route: 048
     Dates: start: 20190430
  10. DOLIPRANE [Concomitant]
     Active Substance: ACETAMINOPHEN
     Indication: PAIN
     Dosage: 1 GRAM, AS NECESSARY, IF NEEDED (MAX 3G/DAY)
     Route: 048
     Dates: end: 20190604
  11. CERNEVIT [Suspect]
     Active Substance: VITAMINS
     Indication: VITAMIN SUPPLEMENTATION
     Dosage: 1 DOSAGE FORM, DAILY,1-0-0
     Route: 042
     Dates: start: 20190615
  12. ATORVASTATINE ARROW [Concomitant]
     Active Substance: ATORVASTATIN
     Indication: DYSLIPIDAEMIA
     Dosage: 10 MILLIGRAM, DAILY,0-0-1
     Route: 048
     Dates: end: 20190603
  13. HYDROCORTISONE ROUSSEL [Concomitant]
     Active Substance: HYDROCORTISONE
     Indication: BLOOD CORTICOTROPHIN DECREASED
     Dosage: 40 MILLIGRAM, DAILY,2-1-1
     Route: 048
     Dates: end: 20190618
  14. PIPERACILLINE / TAZOBACTAM MYLAN [Suspect]
     Active Substance: PIPERACILLIN SODIUM\TAZOBACTAM SODIUM
     Indication: BACTERAEMIA
     Dosage: 3 DOSAGE FORM, DAILY,1-1-1
     Route: 042
     Dates: start: 20190604
  15. RIVOTRIL [Suspect]
     Active Substance: CLONAZEPAM
     Indication: STATUS EPILEPTICUS
     Dosage: 1 DOSAGE FORM, DAILY
     Route: 042
     Dates: start: 20190604
  16. SALBUTAMOL ARROW [Suspect]
     Active Substance: ALBUTEROL
     Indication: RESPIRATORY FAILURE
     Dosage: 4 DOSAGE FORM, DAILY,1-1-1-1 (5MG/2.5 ML)
     Route: 055
     Dates: start: 20190430
  17. OPHTIM [Concomitant]
     Active Substance: TIMOLOL MALEATE
     Indication: GLAUCOMA
     Dosage: 1 DOSAGE FORM, DAILY,0-0-1
     Route: 047
     Dates: start: 20190430
  18. MONOPROST [Concomitant]
     Active Substance: LATANOPROST
     Indication: GLAUCOMA
     Dosage: 1 DOSAGE FORM, DAILY,0-0-1
     Route: 047
     Dates: start: 20190430
  19. LEVOTHYROX [Concomitant]
     Active Substance: LEVOTHYROXINE
     Indication: SECONDARY HYPOTHYROIDISM
     Dosage: 150 MICROGRAM, DAILY,1-0-0
     Route: 048
  20. LOVENOX [Concomitant]
     Active Substance: ENOXAPARIN SODIUM
     Indication: THROMBOSIS PROPHYLAXIS
     Dosage: 4000 INTERNATIONAL UNIT, DAILY
     Route: 057
     Dates: start: 20190510, end: 20190614

REACTIONS (1)
  - Drug reaction with eosinophilia and systemic symptoms [Recovering/Resolving]

NARRATIVE: CASE EVENT DATE: 20190618
